FAERS Safety Report 9266097 (Version 2)
Quarter: 2013Q2

REPORT INFORMATION
  Report Type: Report from Study
  Country: IL (occurrence: IL)
  Receive Date: 20130501
  Receipt Date: 20130502
  Transmission Date: 20140414
  Serious: Yes (Death)
  Sender: FDA-Public Use
  Company Number: IL-ROCHE-1220411

PATIENT
  Age: 86 Year
  Sex: Male
  Weight: 64 kg

DRUGS (2)
  1. AVASTIN [Suspect]
     Indication: COLON CANCER METASTATIC
     Route: 042
     Dates: start: 20130218
  2. IRINOTECAN [Concomitant]
     Indication: COLON CANCER METASTATIC

REACTIONS (1)
  - Disease progression [Fatal]
